FAERS Safety Report 13924423 (Version 1)
Quarter: 2017Q3

REPORT INFORMATION
  Report Type: Report from Study
  Country: MX (occurrence: MX)
  Receive Date: 20170831
  Receipt Date: 20170831
  Transmission Date: 20171127
  Serious: Yes (Other)
  Sender: FDA-Public Use
  Company Number: PHHY2017MX127386

PATIENT
  Sex: Female

DRUGS (1)
  1. TEGRETOL [Suspect]
     Active Substance: CARBAMAZEPINE
     Indication: EPILEPSY
     Dosage: 7 DF, QD (2 IN THE MORNING, 2 AT MIDDAY, 3 AT NIGHT), SINCE THE AGE OF 6 YEARS
     Route: 065

REACTIONS (4)
  - Inappropriate schedule of drug administration [Unknown]
  - Deafness [Unknown]
  - Liver disorder [Unknown]
  - Lung disorder [Unknown]
